FAERS Safety Report 5032284-3 (Version None)
Quarter: 2006Q2

REPORT INFORMATION
  Report Type: 
  Country: None (occurrence: None)
  Receive Date: 20060619
  Receipt Date: 20060608
  Transmission Date: 20061013
  Serious: Yes (Other)
  Sender: FDA-Public Use
  Company Number: 2006-06-0689

PATIENT
  Age: 66 Year
  Sex: Female

DRUGS (8)
  1. PEG-INTRON [Suspect]
     Indication: HEPATITIS C
     Dosage: 120 MCG SUBCUTANEOUS
     Route: 058
     Dates: start: 20060101, end: 20060213
  2. REBETOL [Suspect]
     Indication: HEPATITIS C
     Dosage: 1000 MG ORAL
     Route: 048
     Dates: start: 20060201, end: 20060213
  3. CALCIUM CARBONATE TABLETS [Concomitant]
  4. DIOVAN (VALSARTAN/HYDROCHLOROTHIAZIDE) TABLETS [Concomitant]
  5. FERROUS SULFATE TABLETS [Concomitant]
  6. SPIRONOLACTONE [Concomitant]
  7. SYNTHROID [Concomitant]
  8. TOPROL-XL [Concomitant]

REACTIONS (5)
  - ASTHENIA [None]
  - CHILLS [None]
  - DEHYDRATION [None]
  - NAUSEA [None]
  - VOMITING [None]
